FAERS Safety Report 9266859 (Version 2)
Quarter: 2013Q2

REPORT INFORMATION
  Report Type: Spontaneous
  Country: CA (occurrence: CA)
  Receive Date: 20130502
  Receipt Date: 20130524
  Transmission Date: 20140414
  Serious: Yes (Other)
  Sender: FDA-Public Use
  Company Number: CA-ROCHE-1212907

PATIENT
  Age: 12 Year
  Sex: Male
  Weight: 53 kg

DRUGS (8)
  1. XOLAIR [Suspect]
     Indication: ASTHMA
     Route: 058
     Dates: start: 20090626
  2. XOLAIR [Suspect]
     Route: 058
     Dates: start: 20090626
  3. XOLAIR [Suspect]
     Route: 058
     Dates: start: 20091102
  4. XOLAIR [Suspect]
     Route: 058
     Dates: start: 20100224
  5. XOLAIR [Suspect]
     Route: 065
     Dates: start: 20130130
  6. XOLAIR [Suspect]
     Route: 065
     Dates: start: 20130311
  7. XOLAIR [Suspect]
     Route: 065
     Dates: start: 20130404
  8. XOLAIR [Suspect]
     Route: 065
     Dates: start: 20130423

REACTIONS (12)
  - Dizziness [Unknown]
  - Hot flush [Unknown]
  - Sinusitis [Unknown]
  - Upper respiratory tract infection [Unknown]
  - Nasopharyngitis [Unknown]
  - Increased viscosity of bronchial secretion [Unknown]
  - Body temperature increased [Unknown]
  - Bronchitis [Unknown]
  - Injection site haemorrhage [Unknown]
  - Injection site erythema [Recovered/Resolved]
  - Injection site pain [Unknown]
  - Fatigue [Unknown]
